FAERS Safety Report 15706234 (Version 1)
Quarter: 2018Q4

REPORT INFORMATION
  Report Type: Spontaneous
  Country: BY (occurrence: BY)
  Receive Date: 20181210
  Receipt Date: 20181210
  Transmission Date: 20190205
  Serious: Yes (Other)
  Sender: FDA-Public Use
  Company Number: BY-BAYER-2018-219870

PATIENT
  Age: 55 Year
  Sex: Male
  Weight: 56.6 kg

DRUGS (9)
  1. DELAMANID [Suspect]
     Active Substance: DELAMANID
     Indication: TUBERCULOSIS
     Dosage: 200 UNK, QD
     Route: 048
     Dates: start: 20180222
  2. AVELOX [Suspect]
     Active Substance: MOXIFLOXACIN HYDROCHLORIDE
     Indication: TUBERCULOSIS
     Dosage: 400 UNK, QD
     Route: 048
     Dates: start: 20180222
  3. LINEZOLID. [Suspect]
     Active Substance: LINEZOLID
     Indication: TUBERCULOSIS
     Dosage: 600 UNK, QD
     Route: 048
     Dates: start: 20180222
  4. AMOXICILLIN AND CLAVULANATE POTASSIUM [Suspect]
     Active Substance: AMOXICILLIN\CLAVULANATE POTASSIUM
     Indication: TUBERCULOSIS
     Dosage: 2500 UNK, QD
     Route: 048
     Dates: start: 20080222
  5. CAPREOMYCIN [Suspect]
     Active Substance: CAPREOMYCIN
     Indication: TUBERCULOSIS
     Dosage: 1000 UNK, QD
     Route: 030
     Dates: start: 20180222, end: 20180907
  6. OMEPRAZOLE. [Concomitant]
     Active Substance: OMEPRAZOLE
     Dosage: 20 MG
     Dates: start: 20180222
  7. PYRIDOXINE [Concomitant]
     Active Substance: PYRIDOXINE
     Dosage: 50 MG
     Dates: start: 20180222
  8. CLOFAZIMINE [Suspect]
     Active Substance: CLOFAZIMINE
     Indication: TUBERCULOSIS
     Dosage: 100 UNK, QD
     Route: 048
     Dates: start: 20180222
  9. CILASTATIN;IMIPENEM [Suspect]
     Active Substance: CILASTATIN SODIUM\IMIPENEM
     Indication: TUBERCULOSIS
     Dosage: 2000 UNK, QD
     Route: 042
     Dates: start: 20180222

REACTIONS (4)
  - Product use in unapproved indication [None]
  - Nephropathy toxic [Not Recovered/Not Resolved]
  - Off label use [None]
  - Platelet count decreased [Unknown]

NARRATIVE: CASE EVENT DATE: 20180907
